FAERS Safety Report 12828426 (Version 1)
Quarter: 2016Q4

REPORT INFORMATION
  Report Type: Report from Study
  Country: ES (occurrence: ES)
  Receive Date: 20161007
  Receipt Date: 20161007
  Transmission Date: 20170207
  Serious: Yes (Life-Threatening, Hospitalization)
  Sender: FDA-Public Use
  Company Number: ES-BAYER-2016-191029

PATIENT
  Age: 74 Year
  Sex: Female

DRUGS (2)
  1. ARCOXIA [Suspect]
     Active Substance: ETORICOXIB
     Indication: PROPHYLAXIS
     Dosage: 60 MG, UNK
     Route: 048
     Dates: start: 201312, end: 20141202
  2. ACETYLSALICYLIC ACID (} 100 MG) [Suspect]
     Active Substance: ASPIRIN
     Indication: PROPHYLAXIS
     Dosage: 150 MG, UNK
     Route: 048
     Dates: start: 20141202, end: 20141206

REACTIONS (4)
  - Haemorrhagic anaemia [None]
  - Gastrointestinal angiodysplasia haemorrhagic [None]
  - Labelled drug-drug interaction medication error [None]
  - Drug administration error [None]

NARRATIVE: CASE EVENT DATE: 20141206
